FAERS Safety Report 4441349-6 (Version None)
Quarter: 2004Q3

REPORT INFORMATION
  Report Type: 
  Country: None (occurrence: None)
  Receive Date: 20040728
  Receipt Date: 20040311
  Transmission Date: 20050211
  Serious: No
  Sender: FDA-Public Use
  Company Number: USA040361813

PATIENT
  Sex: Male

DRUGS (2)
  1. STRATTERA [Suspect]
  2. WELLBUTRIN SR [Concomitant]

REACTIONS (2)
  - DRUG INTERACTION [None]
  - VOMITING [None]
